FAERS Safety Report 21389990 (Version 1)
Quarter: 2022Q3

REPORT INFORMATION
  Report Type: Spontaneous
  Country: US (occurrence: None)
  Receive Date: 20220927
  Receipt Date: 20220927
  Transmission Date: 20221027
  Serious: Yes (Hospitalization)
  Sender: FDA-Public Use
  Company Number: None

PATIENT
  Sex: Female

DRUGS (6)
  1. GENGRAF [Suspect]
     Active Substance: CYCLOSPORINE
     Indication: Liver transplant
     Route: 048
     Dates: start: 20170118
  2. AMLODIPINE TAB [Concomitant]
  3. CITRACAL TAB VIT D [Concomitant]
  4. ELIQUIS [Concomitant]
     Active Substance: APIXABAN
  5. MAGNESIUM TAB [Concomitant]
  6. PANTOPRAZOLE TAB [Concomitant]

REACTIONS (3)
  - Laboratory test abnormal [None]
  - Full blood count decreased [None]
  - Gastric haemorrhage [None]
